FAERS Safety Report 8023075-X (Version None)
Quarter: 2012Q1

REPORT INFORMATION
  Report Type: 
  Country: None (occurrence: None)
  Receive Date: 20120104
  Receipt Date: 20111220
  Transmission Date: 20120608
  Serious: Yes (Life-Threatening)
  Sender: FDA-Public Use
  Company Number: CN-CTI_01427_2011

PATIENT
  Sex: Male

DRUGS (5)
  1. CUROSURF [Suspect]
     Indication: OXYGEN SATURATION DECREASED
     Dosage: DAILY DOSE 120 MILLIGRAMS;UNKNOWN
     Route: 039
     Dates: start: 20111107, end: 20111107
  2. ETAMSILATE (ETAMSILATE) [Concomitant]
     Indication: HAEMOSTASIS
     Route: 042
     Dates: start: 20111103, end: 20111116
  3. CEFOTIAM (CEFOTIAM) [Concomitant]
     Indication: INFECTION PROPHYLAXIS
     Dosage: DF
     Route: 042
     Dates: start: 20111107, end: 20111109
  4. MEZLOCILLIN (MEZLOCILLIN) [Concomitant]
     Indication: INFECTION PROPHYLAXIS
     Route: 042
     Dates: start: 20111103, end: 20111108
  5. AMBROXOL (AMBROXOL) [Concomitant]
     Indication: OBSTRUCTIVE AIRWAYS DISORDER
     Route: 042
     Dates: start: 20111103, end: 20111108

REACTIONS (10)
  - INFANTILE APNOEIC ATTACK [None]
  - ERYTHEMA [None]
  - POOR PERIPHERAL CIRCULATION [None]
  - DYSPNOEA [None]
  - PERIPHERAL COLDNESS [None]
  - SEPSIS [None]
  - SHOCK [None]
  - RALES [None]
  - PALLOR [None]
  - OXYGEN SATURATION DECREASED [None]
